FAERS Safety Report 7652987-1 (Version None)
Quarter: 2011Q3

REPORT INFORMATION
  Report Type: 
  Country: None (occurrence: None)
  Receive Date: 20110803
  Receipt Date: 20110725
  Transmission Date: 20111222
  Serious: Yes (Hospitalization)
  Sender: FDA-Public Use
  Company Number: JP-PFIZER INC-2011144106

PATIENT
  Age: 89 Year
  Sex: Female

DRUGS (15)
  1. ENALAPRIL MALEATE [Concomitant]
     Route: 048
  2. LANIRAPID [Concomitant]
     Route: 048
  3. ALFAROL [Concomitant]
     Route: 048
  4. NITROGLYCERIN [Concomitant]
  5. MICARDIS [Concomitant]
     Route: 048
  6. METHYCOBAL [Concomitant]
     Route: 048
  7. TEGRETOL [Concomitant]
     Route: 048
  8. KINEDAK [Concomitant]
     Route: 048
  9. ZOSYN [Suspect]
     Indication: PYELONEPHRITIS
     Dosage: 4.5 G, 1X/DAY
     Route: 041
     Dates: start: 20110614, end: 20110615
  10. PRAVASTATIN SODIUM [Concomitant]
     Route: 048
  11. WARFARIN [Concomitant]
     Route: 048
  12. EPADEL [Concomitant]
     Route: 048
  13. LENDORMIN [Concomitant]
     Route: 048
  14. AMARYL [Concomitant]
     Route: 048
  15. ASPIRIN [Concomitant]
     Route: 048

REACTIONS (3)
  - VOMITING [None]
  - OXYGEN SATURATION DECREASED [None]
  - BLOOD PRESSURE DECREASED [None]
